FAERS Safety Report 20386353 (Version 1)
Quarter: 2022Q1

REPORT INFORMATION
  Report Type: Spontaneous
  Country: US (occurrence: US)
  Receive Date: 20220127
  Receipt Date: 20220127
  Transmission Date: 20220424
  Serious: No
  Sender: FDA-Public Use
  Company Number: US-ALLERGAN-2143716US

PATIENT
  Age: 59 Year
  Sex: Female

DRUGS (2)
  1. BOTOX [Suspect]
     Active Substance: ONABOTULINUMTOXINA
     Indication: Product used for unknown indication
     Dosage: UNK UNK, SINGLE
     Dates: start: 20211209, end: 20211209
  2. QULIPTA [Concomitant]
     Active Substance: ATOGEPANT
     Indication: Migraine
     Dosage: 30 MG, QD
     Route: 048
     Dates: start: 20211209

REACTIONS (1)
  - Headache [Not Recovered/Not Resolved]

NARRATIVE: CASE EVENT DATE: 20211209
